FAERS Safety Report 6079179-4 (Version None)
Quarter: 2009Q1

REPORT INFORMATION
  Report Type: 
  Country: None (occurrence: None)
  Receive Date: 20090216
  Receipt Date: 20090209
  Transmission Date: 20090719
  Serious: Yes (Hospitalization)
  Sender: FDA-Public Use
  Company Number: B0557244A

PATIENT
  Age: 20 Year
  Sex: Female

DRUGS (3)
  1. LAMOTRIGINE [Suspect]
     Indication: EPILEPSY
  2. VALPROIC ACID [Concomitant]
  3. CLONAZEPAM [Concomitant]

REACTIONS (27)
  - ANAEMIA [None]
  - ASPARTATE AMINOTRANSFERASE INCREASED [None]
  - BLISTER [None]
  - BLOOD GLUCOSE INCREASED [None]
  - BLOOD LACTATE DEHYDROGENASE INCREASED [None]
  - CONDITION AGGRAVATED [None]
  - CONJUNCTIVITIS INFECTIVE [None]
  - CULTURE THROAT POSITIVE [None]
  - ERYTHEMA [None]
  - EXCORIATION [None]
  - EYE DISCHARGE [None]
  - EYELID OEDEMA [None]
  - HEPATIC ENZYME ABNORMAL [None]
  - HYPOALBUMINAEMIA [None]
  - HYPOPROTEINAEMIA [None]
  - LEUKOCYTOSIS [None]
  - ONYCHOMADESIS [None]
  - PALATAL DISORDER [None]
  - PURPURA [None]
  - PURULENCE [None]
  - PYREXIA [None]
  - RASH MACULAR [None]
  - RASH PAPULAR [None]
  - SKIN HYPOPIGMENTATION [None]
  - STAPHYLOCOCCAL IDENTIFICATION TEST POSITIVE [None]
  - STEVENS-JOHNSON SYNDROME [None]
  - TOXIC EPIDERMAL NECROLYSIS [None]
